FAERS Safety Report 21213431 (Version 1)
Quarter: 2022Q3

REPORT INFORMATION
  Report Type: Spontaneous
  Country: US (occurrence: US)
  Receive Date: 20220815
  Receipt Date: 20220815
  Transmission Date: 20221027
  Serious: No
  Sender: FDA-Public Use
  Company Number: US-CELGENE-USA-20220102763

PATIENT
  Age: 57 Year
  Sex: Female

DRUGS (3)
  1. REVLIMID [Suspect]
     Active Substance: LENALIDOMIDE
     Indication: Plasma cell myeloma
     Dosage: 25 MILLIGRAM
     Route: 048
     Dates: start: 202112
  2. REVLIMID [Suspect]
     Active Substance: LENALIDOMIDE
     Dosage: 20 MILLIGRAM. DO NOT TAKE FIRST DOSE UNTIL DIRECTED BY CLINICAL TEAM.
     Route: 048
     Dates: start: 20220112
  3. REVLIMID [Suspect]
     Active Substance: LENALIDOMIDE
     Dosage: 15MILLIGRAM. DO NOT TAKE FIRST DOSE UNTIL DIRECTED BY CLINICAL TEAM.
     Route: 048
     Dates: start: 202202

REACTIONS (2)
  - Rash [Unknown]
  - Diarrhoea [Unknown]
